FAERS Safety Report 22190904 (Version 4)
Quarter: 2023Q2

REPORT INFORMATION
  Report Type: Spontaneous
  Country: US (occurrence: US)
  Receive Date: 20230410
  Receipt Date: 20230627
  Transmission Date: 20230721
  Serious: Yes (Hospitalization, Other)
  Sender: FDA-Public Use
  Company Number: US-MLMSERVICE-20230327-4191248-2

PATIENT
  Age: 29 Year
  Sex: Male
  Weight: 81.9 kg

DRUGS (23)
  1. DEXAMETHASONE [Suspect]
     Active Substance: DEXAMETHASONE
     Indication: Tonsillar exudate
     Dosage: UNK
     Route: 065
  2. DEXAMETHASONE [Suspect]
     Active Substance: DEXAMETHASONE
     Indication: Peritonsillar abscess
  3. METHYLPREDNISOLONE [Suspect]
     Active Substance: METHYLPREDNISOLONE
     Indication: Evidence based treatment
     Dosage: 1 DOSAGE FORM, TOTAL
     Route: 042
  4. METHYLPREDNISOLONE [Suspect]
     Active Substance: METHYLPREDNISOLONE
     Indication: Angioedema
     Dosage: 40 MILLIGRAM, TWO TIMES A DAY
     Route: 065
     Dates: start: 20210930, end: 20211002
  5. METHYLPREDNISOLONE [Suspect]
     Active Substance: METHYLPREDNISOLONE
     Indication: Swelling face
  6. PREDNISONE [Suspect]
     Active Substance: PREDNISONE
     Indication: Kaposi^s sarcoma
     Dosage: UNK
     Route: 065
  7. PREDNISONE [Suspect]
     Active Substance: PREDNISONE
     Indication: Angioedema
     Dosage: 40 MILLIGRAM
     Route: 065
     Dates: start: 20211003, end: 20211004
  8. PREDNISONE [Suspect]
     Active Substance: PREDNISONE
     Indication: Swelling face
  9. DECADRON [Suspect]
     Active Substance: DEXAMETHASONE
     Indication: Peritonsillar abscess
     Dosage: AT 0500
     Route: 065
     Dates: start: 20210911, end: 20210911
  10. DECADRON [Suspect]
     Active Substance: DEXAMETHASONE
     Indication: Tonsillar exudate
  11. SOLU-MEDROL [Suspect]
     Active Substance: METHYLPREDNISOLONE SODIUM SUCCINATE
     Indication: Evidence based treatment
     Dosage: 125 MILLIGRAM, 1 TOTAL
     Route: 065
     Dates: start: 20211014, end: 20211014
  12. ALITRETINOIN [Concomitant]
     Active Substance: ALITRETINOIN
     Indication: Product used for unknown indication
     Dosage: UNK
     Route: 061
  13. BICTEGRAVIR\EMTRICITABINE\TENOFOVIR ALAFENAMIDE [Concomitant]
     Active Substance: BICTEGRAVIR\EMTRICITABINE\TENOFOVIR ALAFENAMIDE
     Indication: HIV infection
     Dosage: UNK
     Route: 065
  14. CLINDAMYCIN [Concomitant]
     Active Substance: CLINDAMYCIN
     Indication: Tonsillar exudate
     Dosage: UNK
     Route: 065
  15. CLINDAMYCIN [Concomitant]
     Active Substance: CLINDAMYCIN
     Indication: Peritonsillar abscess
  16. DIPHENHYDRAMINE [Concomitant]
     Active Substance: DIPHENHYDRAMINE
     Indication: Evidence based treatment
     Dosage: 1 DOSAGE FORM, TOTAL
     Route: 065
  17. EPINEPHRINE [Concomitant]
     Active Substance: EPINEPHRINE
     Indication: Evidence based treatment
     Dosage: 1 DOSAGE FORM
     Route: 030
  18. EPINEPHRINE [Concomitant]
     Active Substance: EPINEPHRINE
     Dosage: UNK
     Route: 058
  19. FAMOTIDINE [Concomitant]
     Active Substance: FAMOTIDINE
     Indication: Evidence based treatment
     Dosage: 1 DOSAGE FORM, TOTAL
  20. SULFAMETHOXAZOLE AND TRIMETHOPRIM [Concomitant]
     Active Substance: SULFAMETHOXAZOLE\TRIMETHOPRIM
     Indication: Antibiotic prophylaxis
     Dosage: UNK
     Route: 065
  21. VALGANCICLOVIR [Concomitant]
     Active Substance: VALGANCICLOVIR
     Indication: Antiretroviral therapy
     Dosage: UNK
     Route: 065
  22. COTRIMOXAZOLE [Concomitant]
     Active Substance: SULFAMETHOXAZOLE\TRIMETHOPRIM
     Indication: Antiretroviral therapy
     Dosage: UNK
     Route: 065
  23. COTRIMOXAZOLE [Concomitant]
     Active Substance: SULFAMETHOXAZOLE\TRIMETHOPRIM
     Indication: Prophylaxis

REACTIONS (3)
  - Kaposi^s sarcoma [Recovering/Resolving]
  - Condition aggravated [Recovering/Resolving]
  - Metastasis [Unknown]
